FAERS Safety Report 9743828 (Version 1)
Quarter: 2013Q4

REPORT INFORMATION
  Report Type: Spontaneous
  Country: US (occurrence: US)
  Receive Date: 20131210
  Receipt Date: 20131210
  Transmission Date: 20140711
  Serious: No
  Sender: FDA-Public Use
  Company Number: US-BIOGENIDEC-2013BI096576

PATIENT
  Sex: Female

DRUGS (1)
  1. TECFIDERA [Suspect]
     Indication: MULTIPLE SCLEROSIS
     Dates: start: 20130919

REACTIONS (5)
  - Muscle spasms [Recovered/Resolved]
  - Weight increased [Not Recovered/Not Resolved]
  - Flushing [Unknown]
  - Nausea [Recovered/Resolved]
  - Burning sensation [Recovered/Resolved]
